FAERS Safety Report 6804695-4 (Version None)
Quarter: 2010Q2

REPORT INFORMATION
  Report Type: 
  Country: None (occurrence: None)
  Receive Date: 20100628
  Receipt Date: 20070517
  Transmission Date: 20101027
  Serious: No
  Sender: FDA-Public Use
  Company Number: US-PFIZER INC-2007023129

PATIENT
  Sex: Male
  Weight: 14.5 kg

DRUGS (2)
  1. GENOTROPIN [Suspect]
     Indication: GROWTH RETARDATION
     Dates: start: 20060101
  2. VITAMINS [Concomitant]

REACTIONS (2)
  - EYE DISORDER [None]
  - STRABISMUS [None]
